FAERS Safety Report 8594075 (Version 5)
Quarter: 2012Q4

REPORT INFORMATION
  Report Type: 
  Country: US (occurrence: US)
  Receive Date: 20120604
  Receipt Date: 20120924
  Transmission Date: 20130627
  Serious: Yes (Disabling, Other)
  Sender: FDA-Public Use
  Company Number: US-PFIZER INC-2012130757

PATIENT
  Age: 64 Year
  Sex: Female
  Weight: 79.4 kg

DRUGS (7)
  1. CHANTIX [Suspect]
     Indication: SMOKING CESSATION THERAPY
     Dosage: 0.5 mg, daily
     Route: 048
  2. CHANTIX [Suspect]
     Dosage: UNK
     Route: 048
     Dates: end: 201205
  3. XANAX [Suspect]
     Indication: ANXIETY
     Dosage: UNK
     Route: 048
  4. LOSARTAN [Suspect]
     Indication: BLOOD PRESSURE ABNORMAL
     Dosage: 100 mg, 3x/week
     Dates: end: 201205
  5. LOSARTAN [Suspect]
     Dosage: 100 mg, daily
     Dates: start: 201205
  6. CYMBALTA [Suspect]
     Indication: DEPRESSION
     Dosage: UNK
  7. BYSTOLIC [Concomitant]
     Indication: BLOOD PRESSURE ABNORMAL
     Dosage: 5 mg, 2x/day

REACTIONS (19)
  - Amnesia [Recovering/Resolving]
  - Renal failure chronic [Recovering/Resolving]
  - Hypertension [Recovering/Resolving]
  - Hallucination [Recovering/Resolving]
  - Panic attack [Recovering/Resolving]
  - Paranoia [Recovering/Resolving]
  - Delusion [Recovering/Resolving]
  - Aggression [Recovering/Resolving]
  - Abnormal behaviour [Recovering/Resolving]
  - Agitation [Recovering/Resolving]
  - Anger [Recovering/Resolving]
  - Nervousness [Recovering/Resolving]
  - Fear [Recovering/Resolving]
  - Feeling abnormal [Recovering/Resolving]
  - Flat affect [Recovering/Resolving]
  - Dysstasia [Unknown]
  - Presyncope [Unknown]
  - Insomnia [Recovering/Resolving]
  - Drug effect incomplete [Unknown]
